FAERS Safety Report 6164191-7 (Version None)
Quarter: 2009Q2

REPORT INFORMATION
  Report Type: 
  Country: None (occurrence: None)
  Receive Date: 20090422
  Receipt Date: 20090415
  Transmission Date: 20091009
  Serious: Yes (Other)
  Sender: FDA-Public Use
  Company Number: US-SANOFI-SYNTHELABO-A03200901656

PATIENT
  Age: 52 Year
  Sex: Female

DRUGS (6)
  1. NEXIUM [Suspect]
     Dosage: UNK
     Route: 065
  2. NEXIUM [Suspect]
     Indication: PROPHYLAXIS
     Dosage: UNK
     Route: 065
  3. PLAVIX [Suspect]
     Indication: THROMBOSIS PROPHYLAXIS
     Route: 048
     Dates: start: 20081201
  4. PLAVIX [Suspect]
     Indication: IMMOBILISATION PROLONGED
     Route: 048
     Dates: start: 20081201
  5. PLAVIX [Suspect]
     Route: 048
     Dates: start: 20080701, end: 20081001
  6. PLAVIX [Suspect]
     Route: 048
     Dates: start: 20080701, end: 20081001

REACTIONS (3)
  - ANGIOPATHY [None]
  - COMPLEX REGIONAL PAIN SYNDROME [None]
  - TENDON RUPTURE [None]
